FAERS Safety Report 21440589 (Version 1)
Quarter: 2022Q4

REPORT INFORMATION
  Report Type: Report from Study
  Country: US (occurrence: US)
  Receive Date: 20221011
  Receipt Date: 20221011
  Transmission Date: 20230113
  Serious: No
  Sender: FDA-Public Use
  Company Number: US-ABBVIE-4143882

PATIENT
  Sex: Female

DRUGS (3)
  1. HUMIRA [Suspect]
     Active Substance: ADALIMUMAB
     Indication: Hidradenitis
     Dosage: CITRATE FREE
     Route: 058
  2. Pfizer/BioNTech [Concomitant]
     Indication: COVID-19 immunisation
     Dosage: FIRST DOSE (ONE IN ONCE)
     Route: 030
     Dates: start: 20210316, end: 20210316
  3. Pfizer/BioNTech [Concomitant]
     Indication: COVID-19 immunisation
     Dosage: SECOND DOSE(ONE IN ONCE)
     Route: 030
     Dates: start: 20210416, end: 20210416

REACTIONS (2)
  - Peripheral swelling [Not Recovered/Not Resolved]
  - Limb mass [Not Recovered/Not Resolved]
